FAERS Safety Report 13252205 (Version 3)
Quarter: 2017Q1

REPORT INFORMATION
  Report Type: Report from Study
  Country: US (occurrence: US)
  Receive Date: 20170220
  Receipt Date: 20170331
  Transmission Date: 20170428
  Serious: Yes (Hospitalization, Other)
  Sender: FDA-Public Use
  Company Number: US-ALEXION PHARMACEUTICALS INC.-A201701485

PATIENT
  Sex: Female

DRUGS (1)
  1. SOLIRIS [Suspect]
     Active Substance: ECULIZUMAB
     Indication: HAEMOLYTIC URAEMIC SYNDROME
     Dosage: UNK
     Route: 042

REACTIONS (8)
  - Fall [Unknown]
  - Central nervous system lesion [Unknown]
  - Graft versus host disease [Unknown]
  - Asthenia [Unknown]
  - Liver disorder [Unknown]
  - Vomiting [Unknown]
  - Nausea [Unknown]
  - Full blood count decreased [Unknown]
